FAERS Safety Report 5097437-7 (Version None)
Quarter: 2006Q3

REPORT INFORMATION
  Report Type: 
  Country: None (occurrence: None)
  Receive Date: 20060901
  Receipt Date: 20060821
  Transmission Date: 20061208
  Serious: Yes (Hospitalization)
  Sender: FDA-Public Use
  Company Number: 2006BH013082

PATIENT
  Age: 30 Year
  Sex: Male
  Weight: 86.8638 kg

DRUGS (1)
  1. DIANEAL [Suspect]
     Indication: PERITONEAL DIALYSIS
     Dosage: IP
     Route: 033

REACTIONS (4)
  - IMPLANT SITE ERYTHEMA [None]
  - KLEBSIELLA INFECTION [None]
  - PERITONITIS [None]
  - WRONG TECHNIQUE IN DRUG USAGE PROCESS [None]
